FAERS Safety Report 13077820 (Version 2)
Quarter: 2017Q1

REPORT INFORMATION
  Report Type: Spontaneous
  Country: US (occurrence: US)
  Receive Date: 20170102
  Receipt Date: 20170126
  Transmission Date: 20170428
  Serious: Yes (Hospitalization, Other)
  Sender: FDA-Public Use
  Company Number: US-ROCHE-1872697

PATIENT
  Age: 33 Year
  Sex: Female
  Weight: 66 kg

DRUGS (4)
  1. RITUXAN [Suspect]
     Active Substance: RITUXIMAB
     Indication: SCLERODERMA
     Dosage: LAST DOSE ON: 04/JAN/2017 (1000 MG)
     Route: 042
     Dates: start: 20160718
  2. RITUXAN [Suspect]
     Active Substance: RITUXIMAB
     Indication: SYSTEMIC SCLERODERMA
  3. CELLCEPT [Suspect]
     Active Substance: MYCOPHENOLATE MOFETIL\MYCOPHENOLATE MOFETIL HYDROCHLORIDE
     Indication: PRODUCT USED FOR UNKNOWN INDICATION
     Route: 048
     Dates: start: 20150121
  4. PREDNISONE. [Concomitant]
     Active Substance: PREDNISONE
     Indication: SCLERODERMA
     Route: 048
     Dates: start: 20150121

REACTIONS (7)
  - Neutropenia [Recovered/Resolved]
  - Mucosal inflammation [Unknown]
  - Off label use [Unknown]
  - Gingivitis [Not Recovered/Not Resolved]
  - Chills [Recovered/Resolved]
  - Pyrexia [Unknown]
  - Stomatitis [Unknown]

NARRATIVE: CASE EVENT DATE: 20161210
